FAERS Safety Report 6763470-X (Version None)
Quarter: 2010Q2

REPORT INFORMATION
  Report Type: 
  Country: None (occurrence: None)
  Receive Date: 20100608
  Receipt Date: 20100527
  Transmission Date: 20101027
  Serious: Yes (Other)
  Sender: FDA-Public Use
  Company Number: TPA2010A03299

PATIENT
  Sex: Female

DRUGS (3)
  1. ULORIC [Suspect]
     Indication: GOUT
     Dates: end: 20100526
  2. CELLCEPT [Suspect]
     Indication: RENAL TRANSPLANT
  3. TACROLIMUS [Suspect]
     Indication: RENAL TRANSPLANT

REACTIONS (1)
  - BONE MARROW FAILURE [None]
